FAERS Safety Report 7635891-4 (Version None)
Quarter: 2011Q3

REPORT INFORMATION
  Report Type: 
  Country: None (occurrence: None)
  Receive Date: 20110726
  Receipt Date: 20110719
  Transmission Date: 20111222
  Serious: Yes (Life-Threatening)
  Sender: FDA-Public Use
  Company Number: JP-JNJFOC-20110709073

PATIENT
  Age: 67 Year
  Sex: Female

DRUGS (3)
  1. DOXORUBICIN HCL [Suspect]
     Indication: OVARIAN CANCER RECURRENT
     Route: 013
     Dates: start: 20110715, end: 20110715
  2. CARBOPLATIN [Concomitant]
     Indication: OVARIAN CANCER RECURRENT
     Route: 013
     Dates: start: 20110715, end: 20110715
  3. GRANISETRON HYDROCHLORIDE [Concomitant]
     Route: 013
     Dates: start: 20110715, end: 20110715

REACTIONS (2)
  - ANAPHYLACTIC REACTION [None]
  - INCORRECT ROUTE OF DRUG ADMINISTRATION [None]
